FAERS Safety Report 12538523 (Version 1)
Quarter: 2016Q3

REPORT INFORMATION
  Report Type: Spontaneous
  Country: ES (occurrence: ES)
  Receive Date: 20160708
  Receipt Date: 20160708
  Transmission Date: 20161109
  Serious: Yes (Other)
  Sender: FDA-Public Use
  Company Number: ES-ROCHE-1790284

PATIENT
  Age: 52 Year
  Sex: Male

DRUGS (5)
  1. METALYSE [Suspect]
     Active Substance: TENECTEPLASE
     Indication: ACUTE CORONARY SYNDROME
     Dosage: DOSE: 4 BOLUSES OF 500 IU EACH INUTE-INTERVALS
     Route: 022
  2. ABCIXIMAB [Concomitant]
     Active Substance: ABCIXIMAB
     Indication: ACUTE CORONARY SYNDROME
     Route: 022
  3. CLOPIDOGREL [Concomitant]
     Active Substance: CLOPIDOGREL BISULFATE
     Indication: ACUTE CORONARY SYNDROME
     Route: 065
  4. ASPIRIN. [Concomitant]
     Active Substance: ASPIRIN
     Indication: ACUTE CORONARY SYNDROME
  5. HEPARIN SODIUM. [Concomitant]
     Active Substance: HEPARIN SODIUM
     Indication: ACUTE CORONARY SYNDROME
     Route: 040

REACTIONS (1)
  - Intracardiac thrombus [Recovered/Resolved]
